FAERS Safety Report 8386726-6 (Version None)
Quarter: 2012Q2

REPORT INFORMATION
  Report Type: 
  Country: None (occurrence: None)
  Receive Date: 20120525
  Receipt Date: 20120518
  Transmission Date: 20120825
  Serious: Yes (Hospitalization)
  Sender: FDA-Public Use
  Company Number: IT-ABBOTT-12P-083-0936746-02

PATIENT
  Sex: Male

DRUGS (6)
  1. HUMIRA [Suspect]
     Indication: CROHN'S DISEASE
     Route: 058
     Dates: start: 20090408, end: 20090408
  2. HUMIRA [Suspect]
     Route: 058
     Dates: start: 20090930, end: 20091022
  3. HUMIRA [Suspect]
     Route: 058
  4. INFLIXIMAB [Concomitant]
     Indication: CROHN'S DISEASE
     Dosage: WEEK 0: 300 MG; WEEK 2: 300 MG
     Dates: start: 20091021
  5. HUMIRA [Suspect]
     Dosage: WEEK 2
     Route: 058
  6. SULFASALAZINE [Concomitant]
     Indication: ARTHROPATHY
     Dates: start: 20090903

REACTIONS (2)
  - CROHN'S DISEASE [None]
  - DISEASE RECURRENCE [None]
